FAERS Safety Report 25373743 (Version 1)
Quarter: 2025Q2

REPORT INFORMATION
  Report Type: Spontaneous
  Country: LB (occurrence: LB)
  Receive Date: 20250529
  Receipt Date: 20250529
  Transmission Date: 20250716
  Serious: Yes (Other)
  Sender: UNICHEM
  Company Number: LB-UNICHEM LABORATORIES LIMITED-UNI-2025-LB-002353

PATIENT

DRUGS (1)
  1. BACLOFEN [Suspect]
     Active Substance: BACLOFEN
     Indication: Gastrooesophageal reflux disease
     Route: 065

REACTIONS (1)
  - Pancreatitis acute [Recovering/Resolving]
